FAERS Safety Report 6743289-6 (Version None)
Quarter: 2010Q2

REPORT INFORMATION
  Report Type: 
  Country: None (occurrence: None)
  Receive Date: 20100527
  Receipt Date: 20100519
  Transmission Date: 20101027
  Serious: Yes (Hospitalization)
  Sender: FDA-Public Use
  Company Number: BR-ASTRAZENECA-2010SE23199

PATIENT
  Sex: Female

DRUGS (2)
  1. LIDOCAINE [Suspect]
     Indication: LOCAL ANAESTHESIA
     Route: 061
  2. COMPAZ [Concomitant]
     Indication: SEDATIVE THERAPY

REACTIONS (3)
  - EXPIRED DRUG ADMINISTERED [None]
  - NAUSEA [None]
  - VOMITING [None]
